FAERS Safety Report 23692859 (Version 2)
Quarter: 2024Q3

REPORT INFORMATION
  Report Type: Spontaneous
  Country: US (occurrence: US)
  Receive Date: 20240401
  Receipt Date: 20240711
  Transmission Date: 20241017
  Serious: No
  Sender: SANOFI AVENTIS
  Company Number: US-SA-SAC20240325000761

PATIENT
  Sex: Male
  Weight: 90 kg

DRUGS (13)
  1. DUPIXENT [Suspect]
     Active Substance: DUPILUMAB
     Indication: Illness
     Dosage: 300 MG, QOW
     Route: 058
  2. BRILINTA [Concomitant]
     Active Substance: TICAGRELOR
  3. CARVEDILOL [Concomitant]
     Active Substance: CARVEDILOL
  4. CLOTRIMAZOLE [Concomitant]
     Active Substance: CLOTRIMAZOLE
  5. DICLOFENAC [Concomitant]
     Active Substance: DICLOFENAC
  6. FLUTICASONE [Concomitant]
     Active Substance: FLUTICASONE
  7. GABAPENTIN [Concomitant]
     Active Substance: GABAPENTIN
  8. JANUMET [Concomitant]
     Active Substance: METFORMIN HYDROCHLORIDE\SITAGLIPTIN PHOSPHATE
  9. MONTELUKAST [Concomitant]
     Active Substance: MONTELUKAST SODIUM
  10. NITROGLYCERIN [Concomitant]
     Active Substance: NITROGLYCERIN
  11. NOVOLOG [Concomitant]
     Active Substance: INSULIN ASPART
  12. PANTOPRAZOLE [Concomitant]
     Active Substance: PANTOPRAZOLE
  13. ROSUVASTATIN [Concomitant]
     Active Substance: ROSUVASTATIN

REACTIONS (3)
  - Pruritus [Unknown]
  - Therapeutic response shortened [Unknown]
  - Illness [Unknown]
